FAERS Safety Report 8610699 (Version 2)
Quarter: 2013Q1

REPORT INFORMATION
  Report Type: Spontaneous
  Country: US (occurrence: None)
  Receive Date: 20120530
  Receipt Date: 20121127
  Transmission Date: 20140127
  Serious: Yes (Other)
  Sender: FDA-Public Use
  Company Number: 1205-261

PATIENT
  Age: 96 Year
  Sex: Female

DRUGS (4)
  1. EYLEA [Suspect]
     Indication: AGE-RELATED MACULAR DEGENERATION
     Dosage: 2 MG, INTRAVITREAL
     Dates: start: 20120425
  2. PROPARACAINE HYDROCHLORIDE (PROXYMETACAINE HYDROCHLORIDE) [Concomitant]
  3. TROPICAMIDE (TROPICAMIDE) [Concomitant]
  4. BETADINE (POVIDONE-IODINE) [Concomitant]

REACTIONS (1)
  - Conjunctivitis [None]
